FAERS Safety Report 12120639 (Version 1)
Quarter: 2016Q1

REPORT INFORMATION
  Report Type: Spontaneous
  Country: US (occurrence: US)
  Receive Date: 20160226
  Receipt Date: 20160226
  Transmission Date: 20160526
  Serious: No
  Sender: FDA-Public Use
  Company Number: US-ALLERGAN-1400959US

PATIENT
  Sex: Male

DRUGS (2)
  1. REFRESH OPTIVE [Suspect]
     Active Substance: CARBOXYMETHYLCELLULOSE SODIUM\GLYCERIN
     Indication: DRY EYE
     Dosage: UNK
     Route: 047
     Dates: start: 20140115
  2. PRESCRIPTION EYE DROP [Concomitant]
     Indication: EYE ULCER
     Dosage: UNK
     Route: 047
     Dates: start: 20140115

REACTIONS (1)
  - Vision blurred [Not Recovered/Not Resolved]
